FAERS Safety Report 18092526 (Version 2)
Quarter: 2020Q3

REPORT INFORMATION
  Report Type: Spontaneous
  Country: US (occurrence: US)
  Receive Date: 20200730
  Receipt Date: 20200803
  Transmission Date: 20201103
  Serious: Yes (Other)
  Sender: FDA-Public Use
  Company Number: US-PFIZER INC-2020286933

PATIENT
  Age: 21 Year
  Sex: Female

DRUGS (1)
  1. MOTRIN [Suspect]
     Active Substance: IBUPROFEN
     Dosage: UNK
     Dates: start: 1978, end: 1978

REACTIONS (7)
  - Meningitis aseptic [Recovered/Resolved]
  - Hypotension [Recovered/Resolved]
  - Conjunctivitis [Recovered/Resolved]
  - Lymphadenopathy [Recovered/Resolved]
  - Drug hypersensitivity [Recovered/Resolved]
  - Pyrexia [Recovered/Resolved]
  - Hepatic function abnormal [Recovered/Resolved]

NARRATIVE: CASE EVENT DATE: 1978
